FAERS Safety Report 9205203 (Version 1)
Quarter: 2013Q2

REPORT INFORMATION
  Report Type: Spontaneous
  Country: KR (occurrence: KR)
  Receive Date: 20130402
  Receipt Date: 20130402
  Transmission Date: 20140414
  Serious: Yes (Hospitalization)
  Sender: FDA-Public Use
  Company Number: PHHY2013KR031340

PATIENT
  Age: 67 Year
  Sex: Male

DRUGS (5)
  1. TRAMADOL [Suspect]
     Indication: PAIN
     Dosage: 400 MG/DAY
  2. PREGABALIN [Concomitant]
     Indication: PAIN
     Dosage: 225 MG/DAY
  3. PREGABALIN [Concomitant]
     Dosage: 600 MG
  4. OXYCODONE [Concomitant]
     Indication: PAIN
     Dosage: 40 MG
  5. FENTANYL [Concomitant]
     Indication: PAIN
     Dosage: 25 UG/HR
     Route: 062

REACTIONS (5)
  - Hyperaesthesia [Unknown]
  - Pain [Recovered/Resolved]
  - Chills [Recovered/Resolved]
  - Rhinorrhoea [Unknown]
  - Hyperhidrosis [Recovered/Resolved]
